FAERS Safety Report 4939081-5 (Version None)
Quarter: 2006Q1

REPORT INFORMATION
  Report Type: 
  Country: None (occurrence: None)
  Receive Date: 20060306
  Receipt Date: 20060224
  Transmission Date: 20060701
  Serious: Yes (Other)
  Sender: FDA-Public Use
  Company Number: 200602033

PATIENT
  Sex: Female

DRUGS (1)
  1. RESTASIS [Suspect]
     Dates: start: 20050101, end: 20060101

REACTIONS (1)
  - LYMPHOCYTIC LYMPHOMA [None]
